FAERS Safety Report 7536293-1 (Version None)
Quarter: 2011Q2

REPORT INFORMATION
  Report Type: 
  Country: None (occurrence: None)
  Receive Date: 20110608
  Receipt Date: 20110608
  Transmission Date: 20111010
  Serious: Yes (Other)
  Sender: FDA-Public Use
  Company Number: None

PATIENT
  Sex: Female
  Weight: 47.6277 kg

DRUGS (1)
  1. SUBOXONE [Suspect]
     Indication: DRUG DEPENDENCE
     Dosage: 8/2 MG 2.5/DAY SL
     Route: 060
     Dates: start: 20110523, end: 20110606

REACTIONS (3)
  - EATING DISORDER [None]
  - THROAT IRRITATION [None]
  - WEIGHT DECREASED [None]
